FAERS Safety Report 10973351 (Version 5)
Quarter: 2015Q2

REPORT INFORMATION
  Report Type: Spontaneous
  Country: JP (occurrence: JP)
  Receive Date: 20150401
  Receipt Date: 20150604
  Transmission Date: 20150821
  Serious: Yes (Other)
  Sender: FDA-Public Use
  Company Number: JP-009507513-1503JPN014056

PATIENT
  Age: 92 Year
  Sex: Female
  Weight: 31 kg

DRUGS (7)
  1. BELSOMRA [Suspect]
     Active Substance: SUVOREXANT
     Indication: INSOMNIA
     Dosage: 15 MG, QD
     Route: 048
     Dates: start: 20150324, end: 20150324
  2. JUVELA N [Concomitant]
     Active Substance: TOCOPHERYL NICOTINATE, D-.ALPHA.
     Indication: PERIPHERAL ARTERIAL OCCLUSIVE DISEASE
     Dosage: FORMULATION: ^POR^, 400 MG, BID
     Route: 048
     Dates: start: 20150224
  3. MAGMITT [Concomitant]
     Active Substance: MAGNESIUM OXIDE
     Indication: CONSTIPATION
     Dosage: FORMULATION: ^POR^, 1000 MG, BID
     Route: 048
     Dates: start: 20150224
  4. ROZEREM [Concomitant]
     Active Substance: RAMELTEON
     Indication: INSOMNIA
     Dosage: FORMULATION: ^POR^, DAILY DOSAGE UNKNOWN
     Route: 048
     Dates: end: 20150323
  5. BELSOMRA [Suspect]
     Active Substance: SUVOREXANT
     Dosage: UNK
  6. TAKEPRON [Concomitant]
     Active Substance: LANSOPRAZOLE
     Indication: GASTROOESOPHAGEAL REFLUX DISEASE
     Dosage: FORMULATION: ^POR^, 15 MG, QD
     Route: 048
     Dates: start: 20150224
  7. GOSHA-JINKI-GAN [Concomitant]
     Active Substance: HERBALS
     Indication: BACK PAIN
     Dosage: FORMULATION: ^POR^, 7.5 G, TID
     Route: 048
     Dates: start: 20150224

REACTIONS (2)
  - Depression [Recovered/Resolved]
  - Suicidal ideation [Recovered/Resolved]

NARRATIVE: CASE EVENT DATE: 20150325
